FAERS Safety Report 4278933-9 (Version None)
Quarter: 2004Q1

REPORT INFORMATION
  Report Type: 
  Country: None (occurrence: None)
  Receive Date: 20040126
  Receipt Date: 20040115
  Transmission Date: 20041129
  Serious: Yes (Hospitalization)
  Sender: FDA-Public Use
  Company Number: FR-BRISTOL-MYERS SQUIBB COMPANY-12479010

PATIENT
  Age: 9 Month
  Sex: Female

DRUGS (3)
  1. MUCOMYST [Suspect]
     Indication: RESPIRATORY DISORDER
     Route: 048
     Dates: start: 20031203
  2. VENTOLIN [Concomitant]
  3. BECOTIDE [Concomitant]

REACTIONS (5)
  - CONDITION AGGRAVATED [None]
  - OTITIS MEDIA ACUTE [None]
  - OXYGEN SATURATION DECREASED [None]
  - RESPIRATORY DISORDER [None]
  - RESPIRATORY TRACT CONGESTION [None]
